FAERS Safety Report 7071341-7 (Version None)
Quarter: 2010Q4

REPORT INFORMATION
  Report Type: 
  Country: None (occurrence: None)
  Receive Date: 20101028
  Receipt Date: 20101028
  Transmission Date: 20110411
  Serious: Yes (Other)
  Sender: FDA-Public Use
  Company Number: None

PATIENT
  Age: 62 Year
  Sex: Female
  Weight: 65.7716 kg

DRUGS (4)
  1. ACTONEL [Suspect]
     Indication: OSTEOPENIA
     Dosage: ONE (9-8-2010) ONCE A WEEK ONE (9-15-2010) ONCE A WEEK
     Dates: start: 20100908
  2. ACTONEL [Suspect]
     Indication: OSTEOPOROSIS
     Dosage: ONE (9-8-2010) ONCE A WEEK ONE (9-15-2010) ONCE A WEEK
     Dates: start: 20100908
  3. ACTONEL [Suspect]
     Indication: OSTEOPENIA
     Dosage: ONE (9-8-2010) ONCE A WEEK ONE (9-15-2010) ONCE A WEEK
     Dates: start: 20100915
  4. ACTONEL [Suspect]
     Indication: OSTEOPOROSIS
     Dosage: ONE (9-8-2010) ONCE A WEEK ONE (9-15-2010) ONCE A WEEK
     Dates: start: 20100915

REACTIONS (3)
  - BACK PAIN [None]
  - OEDEMA PERIPHERAL [None]
  - PAIN IN EXTREMITY [None]
